FAERS Safety Report 13036929 (Version 8)
Quarter: 2017Q2

REPORT INFORMATION
  Report Type: Report from Study
  Country: BR (occurrence: BR)
  Receive Date: 20161216
  Receipt Date: 20170502
  Transmission Date: 20170830
  Serious: Yes (Other)
  Sender: FDA-Public Use
  Company Number: BR-PFIZER INC-2016570288

PATIENT
  Age: 69 Year
  Sex: Male
  Weight: 76 kg

DRUGS (6)
  1. BOSUTINIB [Suspect]
     Active Substance: BOSUTINIB
     Dosage: 600 MG, DAILY
     Dates: start: 20161123
  2. LOSARTAN. [Concomitant]
     Active Substance: LOSARTAN
     Indication: HYPERTENSION
     Dosage: 50 MG, 1X/DAY
     Route: 048
     Dates: start: 20131001
  3. OMEPRAZOLE. [Concomitant]
     Active Substance: OMEPRAZOLE
     Indication: PAIN PROPHYLAXIS
     Dosage: 20 MG, 1X/DAY
     Route: 048
     Dates: start: 20100319
  4. DIPYRONE [Concomitant]
     Active Substance: DIPYRONE
     Indication: PAIN
     Dosage: 40 MG, AS NEEDED
     Route: 048
     Dates: start: 20111024
  5. BOSUTINIB [Suspect]
     Active Substance: BOSUTINIB
     Indication: CHRONIC MYELOID LEUKAEMIA
     Dosage: 600 MG, DAILY
     Route: 048
     Dates: start: 201004
  6. BOSUTINIB [Suspect]
     Active Substance: BOSUTINIB
     Dosage: 400 MG, DAILY
     Route: 048
     Dates: start: 201004

REACTIONS (1)
  - Angina pectoris [Recovered/Resolved]

NARRATIVE: CASE EVENT DATE: 20161205
